FAERS Safety Report 7353950-0 (Version None)
Quarter: 2011Q1

REPORT INFORMATION
  Report Type: 
  Country: None (occurrence: None)
  Receive Date: 20110315
  Receipt Date: 20110301
  Transmission Date: 20110831
  Serious: Yes (Other)
  Sender: FDA-Public Use
  Company Number: PHHY2010US84255

PATIENT
  Sex: Male
  Weight: 82.993 kg

DRUGS (6)
  1. ADVAIR DISKUS 100/50 [Concomitant]
  2. CLONAZEPAM [Concomitant]
  3. PREDNISONE [Concomitant]
  4. GLEEVEC [Suspect]
     Indication: GASTROINTESTINAL STROMAL TUMOUR
     Dosage: 400 MG, QD
     Route: 048
     Dates: start: 20101001
  5. SPIRIVA [Concomitant]
  6. LISINOPRIL [Concomitant]

REACTIONS (3)
  - LACRIMATION INCREASED [None]
  - CHRONIC OBSTRUCTIVE PULMONARY DISEASE [None]
  - RESPIRATORY TRACT INFECTION [None]
